FAERS Safety Report 24571348 (Version 1)
Quarter: 2024Q4

REPORT INFORMATION
  Report Type: Spontaneous
  Country: US (occurrence: US)
  Receive Date: 20241101
  Receipt Date: 20241101
  Transmission Date: 20250114
  Serious: No
  Sender: BRISTOL-MYERS SQUIBB COMPANY
  Company Number: US-BRISTOL-MYERS SQUIBB COMPANY-2024-171251

PATIENT

DRUGS (1)
  1. DEUCRAVACITINIB [Suspect]
     Active Substance: DEUCRAVACITINIB
     Indication: Product used for unknown indication

REACTIONS (1)
  - Sinusitis [Unknown]
